FAERS Safety Report 4956347-3 (Version None)
Quarter: 2006Q1

REPORT INFORMATION
  Report Type: 
  Country: None (occurrence: None)
  Receive Date: 20060323
  Receipt Date: 20060316
  Transmission Date: 20060701
  Serious: Yes (Other)
  Sender: FDA-Public Use
  Company Number: 2006019529

PATIENT
  Age: 10 Year
  Sex: Female

DRUGS (1)
  1. ZARONTIN [Suspect]
     Indication: EPILEPSY
     Dosage: 9 ML (4.5 ML, 2 IN 1 D), ORAL
     Route: 048

REACTIONS (2)
  - CONVULSION [None]
  - DRUG INEFFECTIVE [None]
